FAERS Safety Report 21424239 (Version 1)
Quarter: 2022Q4

REPORT INFORMATION
  Report Type: Report from Study
  Country: AU (occurrence: AU)
  Receive Date: 20221007
  Receipt Date: 20221007
  Transmission Date: 20230112
  Serious: Yes (Hospitalization, Other)
  Sender: FDA-Public Use
  Company Number: AU-TAKEDA-2022TUS046837

PATIENT
  Age: 32 Year
  Sex: Female
  Weight: 76 kg

DRUGS (1)
  1. MARIBAVIR [Suspect]
     Active Substance: MARIBAVIR
     Indication: Cytomegalovirus infection
     Dosage: 400 MILLIGRAM, BID
     Route: 065
     Dates: start: 20210517, end: 20210717

REACTIONS (2)
  - Gastritis [Recovered/Resolved]
  - Taste disorder [Unknown]

NARRATIVE: CASE EVENT DATE: 20210701
